FAERS Safety Report 15651815 (Version 1)
Quarter: 2018Q4

REPORT INFORMATION
  Report Type: Spontaneous
  Country: US (occurrence: US)
  Receive Date: 20181123
  Receipt Date: 20181123
  Transmission Date: 20190205
  Serious: No
  Sender: FDA-Public Use
  Company Number: US-ASTRAZENECA-2018SF42515

PATIENT
  Sex: Male
  Weight: 59 kg

DRUGS (3)
  1. CITALOPRAM [Concomitant]
     Active Substance: CITALOPRAM HYDROBROMIDE
     Indication: ANXIETY
     Dosage: 10.0MG UNKNOWN
     Route: 065
  2. BUSPIRONE [Concomitant]
     Active Substance: BUSPIRONE HYDROCHLORIDE
     Indication: ANXIETY
     Dosage: UNKNOWN
     Route: 065
  3. SYMBICORT [Suspect]
     Active Substance: BUDESONIDE\FORMOTEROL FUMARATE DIHYDRATE
     Dosage: 80/4.5 MCG TWO PUFFS TWO TIMES A DAY
     Route: 055

REACTIONS (16)
  - Mucosal inflammation [Unknown]
  - Throat irritation [Unknown]
  - Intentional product misuse [Unknown]
  - Oral candidiasis [Unknown]
  - Stress [Unknown]
  - Anxiety [Not Recovered/Not Resolved]
  - Pneumonia [Unknown]
  - Neuropathy peripheral [Not Recovered/Not Resolved]
  - Sinus disorder [Unknown]
  - Oropharyngeal pain [Unknown]
  - Upper respiratory tract infection [Unknown]
  - Secretion discharge [Unknown]
  - Weight decreased [Unknown]
  - Headache [Unknown]
  - Back pain [Unknown]
  - Adverse drug reaction [Not Recovered/Not Resolved]
